FAERS Safety Report 24342832 (Version 1)
Quarter: 2024Q3

REPORT INFORMATION
  Report Type: Spontaneous
  Country: ES (occurrence: ES)
  Receive Date: 20240920
  Receipt Date: 20240920
  Transmission Date: 20241016
  Serious: Yes (Hospitalization)
  Sender: CHEPLAPHARM
  Company Number: ES-CHEPLA-2024011988

PATIENT
  Age: 53 Year
  Sex: Male

DRUGS (12)
  1. OLANZAPINE [Interacting]
     Active Substance: OLANZAPINE
  2. LORMETAZEPAM [Interacting]
     Active Substance: LORMETAZEPAM
  3. VALPROIC ACID [Interacting]
     Active Substance: VALPROIC ACID
     Indication: Bipolar disorder
  4. VALPROIC ACID [Interacting]
     Active Substance: VALPROIC ACID
     Indication: Treatment noncompliance
  5. LITHIUM [Interacting]
     Active Substance: LITHIUM
  6. BUPROPION [Interacting]
     Active Substance: BUPROPION
  7. DESVENLAFAXINE [Interacting]
     Active Substance: DESVENLAFAXINE
  8. ARIPIPRAZOLE [Interacting]
     Active Substance: ARIPIPRAZOLE
  9. TRAZODONE [Interacting]
     Active Substance: TRAZODONE HYDROCHLORIDE
  10. METRONIDAZOLE [Interacting]
     Active Substance: METRONIDAZOLE
     Indication: Diverticulitis
     Dosage: DAILY DOSE: 500 MILLIGRAM
  11. CIPROFLOXACIN [Interacting]
     Active Substance: CIPROFLOXACIN
     Indication: Diverticulitis
     Dosage: DAILY DOSE: 1000 MILLIGRAM
  12. DISULFIRAM [Interacting]
     Active Substance: DISULFIRAM
     Indication: Alcoholism

REACTIONS (2)
  - Toxic encephalopathy [Recovered/Resolved]
  - Drug interaction [Unknown]
